FAERS Safety Report 4776842-X (Version None)
Quarter: 2005Q3

REPORT INFORMATION
  Report Type: 
  Country: None (occurrence: None)
  Receive Date: 20050921
  Receipt Date: 20050913
  Transmission Date: 20060218
  Serious: Yes (Hospitalization, Other)
  Sender: FDA-Public Use
  Company Number: TPA2005A01056

PATIENT
  Age: 72 Year
  Sex: Female
  Weight: 96.1626 kg

DRUGS (11)
  1. ACTOS [Suspect]
     Indication: DIABETES MELLITUS NON-INSULIN-DEPENDENT
     Dosage: 30 MG, 1 IN 1 D, PER ORAL
     Route: 048
     Dates: start: 20010101
  2. GLUCOTROL [Concomitant]
  3. GLUCOPHAGE [Concomitant]
  4. NORVASC [Concomitant]
  5. ATENOLOL/CHLORTHALIDONE (TENORETIC) [Concomitant]
  6. INDOCIN [Concomitant]
  7. LIPITOR [Concomitant]
  8. ZOLOFT [Concomitant]
  9. VALIUM [Concomitant]
  10. LASIX [Concomitant]
  11. NITRO PATCH (GLYCERYL TRINITRATE) (POULTICE OR PATCH) [Concomitant]

REACTIONS (6)
  - BREAST MASS [None]
  - CARPAL TUNNEL SYNDROME [None]
  - DEPRESSION [None]
  - DIVERTICULITIS [None]
  - OSTEOPOROSIS [None]
  - TREMOR [None]
